FAERS Safety Report 8390359-5 (Version None)
Quarter: 2012Q2

REPORT INFORMATION
  Report Type: 
  Country: None (occurrence: None)
  Receive Date: 20120529
  Receipt Date: 20120515
  Transmission Date: 20120825
  Serious: Yes (Other)
  Sender: FDA-Public Use
  Company Number: US-JNJFOC-20120513532

PATIENT
  Sex: Female
  Weight: 92.08 kg

DRUGS (3)
  1. METHOTREXATE [Concomitant]
     Route: 065
  2. REMICADE [Suspect]
     Indication: PSORIATIC ARTHROPATHY
     Dosage: 3RD INFUSION
     Route: 042
     Dates: start: 20120323
  3. REMICADE [Suspect]
     Route: 042
     Dates: start: 20120101

REACTIONS (5)
  - OBSTRUCTIVE AIRWAYS DISORDER [None]
  - LUNG DISORDER [None]
  - ADVERSE DRUG REACTION [None]
  - DYSPNOEA [None]
  - INFUSION RELATED REACTION [None]
